FAERS Safety Report 6850997-5 (Version None)
Quarter: 2010Q3

REPORT INFORMATION
  Report Type: 
  Country: None (occurrence: None)
  Receive Date: 20100716
  Receipt Date: 20100707
  Transmission Date: 20110219
  Serious: Yes (Other)
  Sender: FDA-Public Use
  Company Number: JP-ELI_LILLY_AND_COMPANY-JP201007002149

PATIENT
  Age: 56 Year
  Sex: Female

DRUGS (1)
  1. GEMZAR [Suspect]
     Indication: PANCREATIC CARCINOMA RECURRENT
     Dosage: 1000 MG, OTHER
     Route: 042

REACTIONS (4)
  - HAEMATURIA [None]
  - PERICARDIAL EFFUSION [None]
  - PROTEINURIA [None]
  - RIGHT VENTRICULAR FAILURE [None]
